FAERS Safety Report 23421126 (Version 1)
Quarter: 2024Q1

REPORT INFORMATION
  Report Type: Spontaneous
  Country: US (occurrence: US)
  Receive Date: 20240119
  Receipt Date: 20240119
  Transmission Date: 20240409
  Serious: Yes (Other)
  Sender: FDA-Public Use
  Company Number: US-BRISTOL-MYERS SQUIBB COMPANY-2024-004416

PATIENT
  Age: 53 Year
  Sex: Male
  Weight: 99.79 kg

DRUGS (5)
  1. KENALOG-40 [Suspect]
     Active Substance: TRIAMCINOLONE ACETONIDE
     Indication: Intervertebral disc protrusion
     Dosage: DOSE: 40 MG; FREQ: ONCE, SPINAL INJECTION AS NEEDED
     Route: 024
     Dates: start: 20231027
  2. OLMESARTAN [Concomitant]
     Active Substance: OLMESARTAN
     Indication: Product used for unknown indication
  3. AMLODIPINE BESYLATE [Concomitant]
     Active Substance: AMLODIPINE BESYLATE
     Indication: Product used for unknown indication
  4. LIPITOR [Concomitant]
     Active Substance: ATORVASTATIN CALCIUM
     Indication: Product used for unknown indication
  5. PRILOSEC [Concomitant]
     Active Substance: OMEPRAZOLE MAGNESIUM
     Indication: Product used for unknown indication

REACTIONS (17)
  - Diarrhoea [Recovering/Resolving]
  - Headache [Unknown]
  - Night sweats [Unknown]
  - Insomnia [Unknown]
  - Functional gastrointestinal disorder [Unknown]
  - Chest pain [Unknown]
  - Adrenal insufficiency [Unknown]
  - Dizziness [Unknown]
  - Disturbance in attention [Unknown]
  - Head discomfort [Unknown]
  - Euphoric mood [Unknown]
  - Asthenopia [Unknown]
  - Back pain [Unknown]
  - Flatulence [Unknown]
  - Hepatic steatosis [Unknown]
  - Feeling abnormal [Unknown]
  - Off label use [Unknown]

NARRATIVE: CASE EVENT DATE: 20231027
